FAERS Safety Report 10008928 (Version 2)
Quarter: 2014Q1

REPORT INFORMATION
  Report Type: Spontaneous
  Country: US (occurrence: US)
  Receive Date: 20140313
  Receipt Date: 20140313
  Transmission Date: 20141002
  Serious: Yes (Hospitalization)
  Sender: FDA-Public Use
  Company Number: US-INCYTE CORPORATION-2012IN001071

PATIENT
  Age: 83 Year
  Sex: Male
  Weight: 71.66 kg

DRUGS (5)
  1. JAKAFI [Suspect]
     Indication: JANUS KINASE 2 MUTATION
     Dosage: 20 MG, BID
     Route: 048
     Dates: start: 20120320, end: 20120503
  2. JAKAFI [Suspect]
     Dosage: 5 MG, BID
     Route: 048
     Dates: start: 20120504, end: 20120516
  3. DIOVAN HCT [Concomitant]
     Dosage: 160/25 MG, QD
  4. DILTIAZEM [Concomitant]
     Dosage: 320 MG, QD
  5. IRON DEXTRAN [Concomitant]
     Route: 042

REACTIONS (1)
  - Transfusion [Unknown]
